FAERS Safety Report 14149917 (Version 1)
Quarter: 2017Q4

REPORT INFORMATION
  Report Type: Spontaneous
  Country: GB (occurrence: GB)
  Receive Date: 20171101
  Receipt Date: 20171101
  Transmission Date: 20180321
  Serious: Yes (Death, Other)
  Sender: FDA-Public Use
  Company Number: GB-PURDUE PHARMA-GBR-2017-0050102

PATIENT

DRUGS (2)
  1. MORPHINE SULFATE. [Suspect]
     Active Substance: MORPHINE SULFATE
     Indication: PRODUCT USED FOR UNKNOWN INDICATION
     Route: 065
  2. PREGABALIN. [Suspect]
     Active Substance: PREGABALIN
     Indication: EPILEPSY
     Route: 065

REACTIONS (5)
  - Pneumonia [Unknown]
  - Toxicity to various agents [Fatal]
  - Overdose [Fatal]
  - Drug dispensing error [Fatal]
  - Wrong drug administered [Fatal]

NARRATIVE: CASE EVENT DATE: 201608
